FAERS Safety Report 13204162 (Version 2)
Quarter: 2017Q1

REPORT INFORMATION
  Report Type: Spontaneous
  Country: JP (occurrence: JP)
  Receive Date: 20170209
  Receipt Date: 20170224
  Transmission Date: 20170428
  Serious: Yes (Other)
  Sender: FDA-Public Use
  Company Number: JP-GLAXOSMITHKLINE-JP2017GSK018353

PATIENT
  Sex: Male

DRUGS (4)
  1. METHYCOBAL [Suspect]
     Active Substance: METHYLCOBALAMIN
     Indication: PRODUCT USED FOR UNKNOWN INDICATION
     Dosage: 7000 MG, SINGLE
     Route: 048
     Dates: start: 20170202, end: 20170202
  2. VENCOLL [Suspect]
     Active Substance: CASANTHRANOL\DOCUSATE SODIUM
     Indication: PRODUCT USED FOR UNKNOWN INDICATION
     Dosage: 84 DF, SINGLE
     Route: 048
     Dates: start: 20170202, end: 20170202
  3. BIO-THREE [Suspect]
     Active Substance: HERBALS
     Indication: PRODUCT USED FOR UNKNOWN INDICATION
     Dosage: 84 DF, SINGLE
     Route: 048
     Dates: start: 20170202, end: 20170202
  4. VOLTAREN [Suspect]
     Active Substance: DICLOFENAC SODIUM
     Indication: ANALGESIC THERAPY
     Dosage: 350 MG, QD
     Route: 048
     Dates: start: 20170202, end: 20170202

REACTIONS (2)
  - Altered state of consciousness [Not Recovered/Not Resolved]
  - Overdose [Unknown]

NARRATIVE: CASE EVENT DATE: 20170202
